FAERS Safety Report 5927612-8 (Version None)
Quarter: 2008Q4

REPORT INFORMATION
  Report Type: 
  Country: None (occurrence: None)
  Receive Date: 20081023
  Receipt Date: 20070312
  Transmission Date: 20090506
  Serious: Yes (Hospitalization, Other)
  Sender: FDA-Public Use
  Company Number: US-ASTRAZENECA-2008UW23056

PATIENT
  Age: 390 Month
  Sex: Female
  Weight: 115.7 kg

DRUGS (28)
  1. SEROQUEL [Suspect]
     Indication: SLEEP DISORDER
     Route: 048
     Dates: start: 19990101, end: 19990101
  2. SEROQUEL [Suspect]
     Dosage: 25MG + 100MG
     Route: 048
     Dates: start: 20000918, end: 20001011
  3. SEROQUEL [Suspect]
     Route: 048
     Dates: start: 20030101
  4. SEROQUEL [Suspect]
     Route: 048
     Dates: end: 20050501
  5. SEROQUEL [Suspect]
     Route: 048
     Dates: start: 20050501
  6. COGENTIN [Concomitant]
     Dosage: 1MG - 10MG TWO TIMES PER DAY
     Route: 048
  7. HALDOL [Concomitant]
     Dosage: 5MG - 20MG TWO TIMES PER DAY
     Route: 048
  8. HALDOL [Concomitant]
     Dosage: 100MG - 250MG EVERY 28 DAYS
     Route: 030
     Dates: start: 20050501
  9. ATIVAN [Concomitant]
     Dosage: 0.5MG - 2MG
  10. ZYPREXA [Concomitant]
     Dosage: 10MG EVERY MORNING; 5MG AT NIGHT
     Dates: end: 20001106
  11. ZYPREXA [Concomitant]
     Dosage: 5MG - 30MG
  12. ZOLOFT [Concomitant]
     Dosage: 25MG - 150MG EVERY MORNING
  13. PREVACID [Concomitant]
  14. TRILAFON [Concomitant]
     Dosage: 8MG-48MG TWO TIMES PER DAY
     Dates: start: 20001031, end: 20001106
  15. LOXITANE [Concomitant]
  16. RISPERDAL [Concomitant]
     Dates: start: 20001106, end: 20001124
  17. TRAZODONE HCL [Concomitant]
     Dosage: 100MG - 150MG AT NIGHT
  18. GEODON [Concomitant]
     Dosage: 40MG - 160MG  TWO TIMES PER DAY
     Route: 048
  19. THORAZINE [Concomitant]
  20. ATENOLOL [Concomitant]
     Dates: start: 20050324
  21. HYDROCHLOROTHIAZIDE [Concomitant]
     Route: 048
     Dates: start: 20050501
  22. PRILOSEC [Concomitant]
     Route: 048
  23. UROCIT-K [Concomitant]
     Route: 048
  24. CONCERTA [Concomitant]
     Dates: start: 20050419
  25. RESTORIL [Concomitant]
  26. PHENERGAN HCL [Concomitant]
     Route: 054
  27. PHENERGAN HCL [Concomitant]
     Route: 030
  28. PROTONIX [Concomitant]
     Route: 048

REACTIONS (12)
  - ABORTION SPONTANEOUS [None]
  - AMENORRHOEA [None]
  - BLOOD PROLACTIN INCREASED [None]
  - BREAST DISCHARGE [None]
  - CHOLECYSTITIS [None]
  - CHOLELITHIASIS [None]
  - HYPERTENSION [None]
  - INTENTIONAL OVERDOSE [None]
  - LIVER FUNCTION TEST ABNORMAL [None]
  - PANCREATITIS [None]
  - TACHYCARDIA [None]
  - TYPE 1 DIABETES MELLITUS [None]
